FAERS Safety Report 11555468 (Version 1)
Quarter: 2015Q3

REPORT INFORMATION
  Report Type: Spontaneous
  Country: US (occurrence: US)
  Receive Date: 20150903
  Receipt Date: 20150903
  Transmission Date: 20151125
  Serious: No
  Sender: FDA-Public Use
  Company Number: US-ELI_LILLY_AND_COMPANY-US201010007312

PATIENT
  Sex: Female

DRUGS (4)
  1. VITAMIN B [Concomitant]
     Active Substance: VITAMIN B
  2. FORTAMET [Concomitant]
     Active Substance: METFORMIN HYDROCHLORIDE
     Dosage: 2000 MG, UNK
  3. HUMALOG MIX75/25 [Suspect]
     Active Substance: INSULIN LISPRO
     Indication: DIABETES MELLITUS
     Dosage: UNK, AS NEEDED
     Dates: start: 2007
  4. DIFLUCAN [Concomitant]
     Active Substance: FLUCONAZOLE
     Indication: LIMB DISCOMFORT

REACTIONS (5)
  - Limb discomfort [Unknown]
  - Bipolar I disorder [Unknown]
  - Weight decreased [Unknown]
  - Anxiety [Unknown]
  - Skin oedema [Unknown]
